FAERS Safety Report 17233693 (Version 1)
Quarter: 2020Q1

REPORT INFORMATION
  Report Type: Report from Study
  Country: None (occurrence: LB)
  Receive Date: 20200105
  Receipt Date: 20200105
  Transmission Date: 20200409
  Serious: Yes (Other)
  Sender: FDA-Public Use
  Company Number: LB-ABBVIE-20K-093-3219800-00

PATIENT
  Age: 57 Year
  Sex: Male
  Weight: 80 kg

DRUGS (4)
  1. HUMIRA [Suspect]
     Active Substance: ADALIMUMAB
     Indication: CROHN^S DISEASE
     Dosage: LOADING DOSE
     Route: 058
     Dates: start: 2014, end: 2014
  2. HUMIRA [Suspect]
     Active Substance: ADALIMUMAB
     Route: 058
     Dates: start: 2014, end: 201904
  3. HUMIRA [Suspect]
     Active Substance: ADALIMUMAB
     Indication: CROHN^S DISEASE
     Dosage: STOPPED EARLY NOV-2019
     Route: 058
     Dates: start: 201904, end: 201911
  4. HUMIRA [Suspect]
     Active Substance: ADALIMUMAB
     Dosage: STARTED EARLY NOV-2019
     Route: 058
     Dates: start: 201911

REACTIONS (6)
  - Hyperhidrosis [Recovering/Resolving]
  - Intestinal stenosis [Not Recovered/Not Resolved]
  - Post procedural complication [Not Recovered/Not Resolved]
  - Intestinal obstruction [Not Recovered/Not Resolved]
  - Loss of consciousness [Recovering/Resolving]
  - Pallor [Recovering/Resolving]

NARRATIVE: CASE EVENT DATE: 201903
